FAERS Safety Report 5020193-5 (Version None)
Quarter: 2006Q2

REPORT INFORMATION
  Report Type: 
  Country: None (occurrence: None)
  Receive Date: 20060602
  Receipt Date: 20060512
  Transmission Date: 20061013
  Serious: Yes (Other)
  Sender: FDA-Public Use
  Company Number: DE200605002938

PATIENT
  Sex: Female

DRUGS (12)
  1. FORTEO [Suspect]
     Indication: OSTEOPOROSIS
     Dosage: 20 UG, DAILY (1/D), UNK
     Dates: start: 20060401
  2. FORTEO [Concomitant]
  3. OPIOIDS [Concomitant]
  4. ZADITEN [Concomitant]
  5. TELFAT /UNK/(FEXOFENADINE) [Concomitant]
  6. RANITIDINE [Concomitant]
  7. LOPERAMIDE HCL [Concomitant]
  8. DIAZEPAM [Concomitant]
  9. NOVALGIN /SCH/ (METAMIZOLE SODIUM MONOHYDRATE) [Concomitant]
  10. CELESTAMINE (BETAMETHASONE, CHOLRPHENAMINE MALEATE) [Concomitant]
  11. FENISTIL   /NET/ (DIMETINDENE MALEATE) [Concomitant]
  12. IDEOS (CALCIUM CARBONATE, COLECALCIFEROL) [Concomitant]

REACTIONS (1)
  - PYODERMA [None]
